FAERS Safety Report 4686823-2 (Version None)
Quarter: 2005Q2

REPORT INFORMATION
  Report Type: 
  Country: None (occurrence: None)
  Receive Date: 20050608
  Receipt Date: 20050527
  Transmission Date: 20051028
  Serious: Yes (Hospitalization, Other)
  Sender: FDA-Public Use
  Company Number: HQWYE012231MAY05

PATIENT
  Age: 52 Year
  Sex: Female

DRUGS (6)
  1. ADVIL [Suspect]
     Dosage: 200 MG 1X PER 1 DAY, ORAL
     Route: 048
     Dates: start: 20040515, end: 20040515
  2. RHINOCORT [Concomitant]
  3. SINGULAIR [Concomitant]
  4. UTROGESTAN (PROGESTERONE) [Concomitant]
  5. FLIXOTIDE (FLUTICASONE PROPIONATE) [Concomitant]
  6. ESTRAVA [Concomitant]

REACTIONS (1)
  - ANAPHYLACTOID REACTION [None]
